FAERS Safety Report 9442854 (Version 1)
Quarter: 2013Q3

REPORT INFORMATION
  Report Type: Spontaneous
  Country: US (occurrence: US)
  Receive Date: 20130806
  Receipt Date: 20130806
  Transmission Date: 20140515
  Serious: No
  Sender: FDA-Public Use
  Company Number: US-009507513-1308USA001762

PATIENT
  Sex: Female

DRUGS (4)
  1. PEG-INTRON [Suspect]
     Dosage: REDIPEN
     Dates: start: 20081102
  2. PEG-INTRON [Suspect]
     Dosage: UNK
  3. REBETOL [Suspect]
     Dosage: UNK
     Route: 048
     Dates: start: 20081102
  4. REBETOL [Suspect]
     Dosage: UNK
     Route: 048

REACTIONS (1)
  - Hepatitis C [Unknown]
